FAERS Safety Report 5449651-6 (Version None)
Quarter: 2007Q3

REPORT INFORMATION
  Report Type: 
  Country: None (occurrence: None)
  Receive Date: 20070910
  Receipt Date: 20070829
  Transmission Date: 20080115
  Serious: Yes (Other)
  Sender: FDA-Public Use
  Company Number: CHNY2007SE03006

PATIENT
  Age: 61 Year
  Sex: Male

DRUGS (1)
  1. LAMISIL [Suspect]
     Indication: TINEA PEDIS
     Dosage: TOPICAL
     Route: 061
     Dates: start: 20070729

REACTIONS (5)
  - PAIN OF SKIN [None]
  - SKIN EXFOLIATION [None]
  - SKIN INFECTION [None]
  - SKIN INFLAMMATION [None]
  - SKIN IRRITATION [None]
